FAERS Safety Report 10160604 (Version 1)
Quarter: 2014Q2

REPORT INFORMATION
  Report Type: Report from Study
  Country: US (occurrence: US)
  Receive Date: 20140508
  Receipt Date: 20140508
  Transmission Date: 20141212
  Serious: Yes (Hospitalization)
  Sender: FDA-Public Use
  Company Number: US-BRISTOL-MYERS SQUIBB COMPANY-20693438

PATIENT
  Age: 8 Year
  Sex: Female
  Weight: 27.15 kg

DRUGS (12)
  1. DASATINIB [Suspect]
     Indication: ACUTE LYMPHOCYTIC LEUKAEMIA
     Dosage: 24MAY12 17OCT12 55?18OCT12 18OCT12 0?19OCT12 21OCT12 55?23OCT13 23OCT13 60 TABS
     Route: 048
     Dates: start: 20120524
  2. MESNA [Suspect]
     Indication: ACUTE LYMPHOCYTIC LEUKAEMIA
     Dosage: 17-JUL-2012, FROM 15-AUG-2012 TO 18-AUG-2012, 13-DEC-2012 AND 06-MAY-2013.
     Dates: start: 20120612
  3. METHOTREXATE [Suspect]
     Indication: ACUTE LYMPHOCYTIC LEUKAEMIA
     Route: 048
     Dates: start: 20130625
  4. MERCAPTOPURINE [Suspect]
  5. LIDOCAINE [Concomitant]
     Dates: start: 20120508
  6. MORPHINE [Concomitant]
  7. ONDANSETRON [Concomitant]
     Dates: start: 20120508
  8. TYLENOL [Concomitant]
     Dates: start: 20120510
  9. ALBUTEROL [Concomitant]
     Dates: start: 20120614
  10. MIRALAX [Concomitant]
     Dates: start: 20120513
  11. ATIVAN [Concomitant]
     Dates: start: 20120611
  12. MIDAZOLAM [Concomitant]
     Dates: start: 20120517

REACTIONS (2)
  - Febrile neutropenia [Recovered/Resolved]
  - Tooth infection [Recovered/Resolved]
